FAERS Safety Report 9913269 (Version 3)
Quarter: 2014Q2

REPORT INFORMATION
  Report Type: Spontaneous
  Country: IT (occurrence: IT)
  Receive Date: 20140220
  Receipt Date: 20140417
  Transmission Date: 20141212
  Serious: Yes (Life-Threatening, Hospitalization, Other)
  Sender: FDA-Public Use
  Company Number: IT-BRISTOL-MYERS SQUIBB COMPANY-20195251

PATIENT
  Age: 83 Year
  Sex: Male

DRUGS (1)
  1. COUMADIN TABS 5 MG [Suspect]
     Indication: DEEP VEIN THROMBOSIS
     Dosage: INT 10DE13 AND RESTART?1DF:1 UNIT
     Route: 048
     Dates: start: 20050101

REACTIONS (8)
  - Cardiac failure [Recovering/Resolving]
  - Rectal haemorrhage [Recovering/Resolving]
  - Anaemia [Recovering/Resolving]
  - International normalised ratio increased [Unknown]
  - Abdominal pain [Unknown]
  - Pain in extremity [Unknown]
  - Back pain [Unknown]
  - Oedema peripheral [Unknown]
